FAERS Safety Report 10515470 (Version 1)
Quarter: 2014Q4

REPORT INFORMATION
  Report Type: Spontaneous
  Country: JP (occurrence: JP)
  Receive Date: 20141014
  Receipt Date: 20141014
  Transmission Date: 20150528
  Serious: Yes (Death)
  Sender: FDA-Public Use
  Company Number: JP-TEVA-515314ISR

PATIENT
  Sex: Male
  Weight: 42 kg

DRUGS (15)
  1. OXYCONTIN [Concomitant]
     Active Substance: OXYCODONE HYDROCHLORIDE
     Indication: CANCER PAIN
     Dosage: 160 MG
     Route: 048
     Dates: start: 20140128, end: 20140423
  2. E-FEN BUCCAL [Suspect]
     Active Substance: FENTANYL CITRATE
     Indication: BREAKTHROUGH PAIN
     Dosage: 200 MICROGRAM DAILY;
     Route: 002
     Dates: start: 20140423, end: 20140423
  3. FENTOS [Concomitant]
     Active Substance: FENTANYL
     Indication: CANCER PAIN
     Dosage: 4 MG
     Route: 062
     Dates: start: 20140423, end: 20140425
  4. CELECOX [Concomitant]
     Active Substance: CELECOXIB
     Indication: CANCER PAIN
     Dosage: 200 MG
     Route: 048
     Dates: start: 20140117, end: 20140424
  5. TS-1 [Concomitant]
     Active Substance: GIMERACIL\OTERACIL\TEGAFUR
     Dosage: 80 MG
     Dates: start: 20140205, end: 20140424
  6. TRAZENTA [Concomitant]
     Active Substance: LINAGLIPTIN
     Dosage: 5 MG
     Route: 048
     Dates: end: 20140424
  7. ROPION [Concomitant]
     Active Substance: FLURBIPROFEN AXETIL
     Indication: CANCER PAIN
     Dosage: 150 MG
     Route: 041
     Dates: start: 20140424, end: 20140425
  8. TAKEPRON [Concomitant]
     Active Substance: LANSOPRAZOLE
     Dosage: 30 MG
     Route: 048
     Dates: end: 20140424
  9. FUROSEMIDE. [Concomitant]
     Active Substance: FUROSEMIDE
     Dosage: 40 MG
     Route: 048
     Dates: end: 20140424
  10. VOGLIBOSE [Concomitant]
     Active Substance: VOGLIBOSE
     Dosage: 330 MG
     Route: 048
     Dates: end: 20140424
  11. RINDERON V [Concomitant]
     Active Substance: BETAMETHASONE VALERATE
     Dosage: 0.5 MG
     Route: 048
     Dates: end: 20140424
  12. SENNOSIDE [Concomitant]
     Active Substance: SENNOSIDES
     Dosage: 12 MG
     Route: 048
     Dates: end: 20140424
  13. PRIMPERAN [Concomitant]
     Active Substance: METOCLOPRAMIDE HYDROCHLORIDE
     Dosage: 5 MG
     Route: 048
     Dates: end: 20140424
  14. SOLANAX [Concomitant]
     Active Substance: ALPRAZOLAM
     Dosage: 0.4 MG
     Route: 048
     Dates: end: 20140424
  15. MAGLAX [Concomitant]
     Active Substance: MAGNESIUM OXIDE
     Dosage: 250 MG
     Route: 048
     Dates: end: 20140424

REACTIONS (1)
  - Bile duct cancer [Fatal]
